FAERS Safety Report 13622007 (Version 1)
Quarter: 2017Q2

REPORT INFORMATION
  Report Type: Spontaneous
  Country: US (occurrence: US)
  Receive Date: 20170607
  Receipt Date: 20170607
  Transmission Date: 20170830
  Serious: No
  Sender: FDA-Public Use
  Company Number: US-ROCHE-1911141

PATIENT
  Age: 68 Year
  Sex: Female

DRUGS (3)
  1. XELODA [Suspect]
     Active Substance: CAPECITABINE
     Indication: NEOPLASM MALIGNANT
     Dosage: TWICE A DAY FOR 14 DAYS, OFF 7 DAYS
     Route: 048
     Dates: start: 20170119
  2. XELODA [Suspect]
     Active Substance: CAPECITABINE
     Dosage: TWICE A DAY FOR 14 DAYS, OFF 7 DAYS
     Route: 048
     Dates: start: 20161016
  3. XELODA [Suspect]
     Active Substance: CAPECITABINE
     Dosage: TWICE A DAY FOR 14 DAYS, OFF 7 DAYS
     Route: 048
     Dates: start: 20161213, end: 20170118

REACTIONS (4)
  - Skin exfoliation [Unknown]
  - Gait disturbance [Unknown]
  - Skin discolouration [Unknown]
  - Dry skin [Unknown]

NARRATIVE: CASE EVENT DATE: 20170118
